FAERS Safety Report 19574187 (Version 1)
Quarter: 2021Q3

REPORT INFORMATION
  Report Type: Spontaneous
  Country: FR (occurrence: FR)
  Receive Date: 20210719
  Receipt Date: 20210719
  Transmission Date: 20211014
  Serious: Yes (Hospitalization)
  Sender: FDA-Public Use
  Company Number: FR-AUROBINDO-AUR-APL-2021-030320

PATIENT
  Age: 22 Year
  Sex: Male

DRUGS (2)
  1. DOLIPRANE [Suspect]
     Active Substance: ACETAMINOPHEN
     Indication: ARTHRALGIA
     Dosage: 19 GRAM 1 TOTAL (06/25/2021: 16 TABS OF 1G,06/26/2021: 3 TABS OF 1G)
     Route: 048
     Dates: start: 20210625, end: 20210626
  2. IBUPROFEN. [Suspect]
     Active Substance: IBUPROFEN
     Indication: ARTHRALGIA
     Dosage: 4 GRAM 1 TOTAL (SOCKET:10 TABS OF 400 MG OR 4G IN 24 HOURS)
     Route: 048
     Dates: start: 20210626, end: 20210626

REACTIONS (3)
  - Hyperlipasaemia [Not Recovered/Not Resolved]
  - Incorrect dosage administered [Recovered/Resolved]
  - Accidental overdose [Recovered/Resolved]

NARRATIVE: CASE EVENT DATE: 20210625
